FAERS Safety Report 24941496 (Version 1)
Quarter: 2025Q1

REPORT INFORMATION
  Report Type: Report from Study
  Country: NO (occurrence: NO)
  Receive Date: 20250207
  Receipt Date: 20250207
  Transmission Date: 20250408
  Serious: Yes (Other)
  Sender: ABBVIE
  Company Number: NO-ABBVIE-5962693

PATIENT
  Age: 83 Year
  Sex: Male

DRUGS (2)
  1. FOSCARBIDOPA\FOSLEVODOPA [Suspect]
     Active Substance: FOSCARBIDOPA\FOSLEVODOPA
     Indication: Parkinson^s disease
     Route: 058
     Dates: start: 20240909
  2. FOSCARBIDOPA\FOSLEVODOPA [Suspect]
     Active Substance: FOSCARBIDOPA\FOSLEVODOPA
     Route: 058

REACTIONS (6)
  - Depressed level of consciousness [Recovered/Resolved]
  - Pruritus [Unknown]
  - Infusion site extravasation [Unknown]
  - Hyporesponsive to stimuli [Recovered/Resolved]
  - Skin infection [Unknown]
  - Skin reaction [Unknown]

NARRATIVE: CASE EVENT DATE: 20240101
